FAERS Safety Report 7397801-7 (Version None)
Quarter: 2011Q2

REPORT INFORMATION
  Report Type: 
  Country: None (occurrence: None)
  Receive Date: 20110401
  Receipt Date: 20110401
  Transmission Date: 20111010
  Serious: Yes (Death)
  Sender: FDA-Public Use
  Company Number: None

PATIENT
  Age: 64 Year
  Sex: Male
  Weight: 88.9 kg

DRUGS (2)
  1. FRAGMIN [Suspect]
     Indication: THROMBOSIS PROPHYLAXIS
     Dosage: 18000 UNITS
  2. AVASTIN [Suspect]
     Indication: GLIOBLASTOMA
     Dosage: 445 MG

REACTIONS (16)
  - CARDIAC DISORDER [None]
  - PAIN [None]
  - ARTHRALGIA [None]
  - PELVIC HAEMATOMA [None]
  - HYPOTENSION [None]
  - PULMONARY FUNCTION TEST DECREASED [None]
  - ABDOMINAL PAIN [None]
  - RESPIRATORY DISTRESS [None]
  - ANXIETY [None]
  - DYSSTASIA [None]
  - HAEMATEMESIS [None]
  - GAIT DISTURBANCE [None]
  - EXTRAVASATION [None]
  - HYPOXIA [None]
  - RETROPERITONEAL HAEMORRHAGE [None]
  - VOMITING [None]
